FAERS Safety Report 6250983-2 (Version None)
Quarter: 2009Q2

REPORT INFORMATION
  Report Type: 
  Country: None (occurrence: None)
  Receive Date: 20090626
  Receipt Date: 20090615
  Transmission Date: 20091009
  Serious: No
  Sender: FDA-Public Use
  Company Number: 2009-198842-NL

PATIENT
  Age: 22 Year
  Sex: Male

DRUGS (2)
  1. MIRTAZAPINE [Suspect]
     Dosage: 15 MG
  2. CANDESARTAN CILEXETIL [Concomitant]

REACTIONS (2)
  - BLOOD PRESSURE INCREASED [None]
  - STRESS [None]
